FAERS Safety Report 4372232-2 (Version None)
Quarter: 2004Q2

REPORT INFORMATION
  Report Type: 
  Country: None (occurrence: None)
  Receive Date: 20040607
  Receipt Date: 20040426
  Transmission Date: 20050107
  Serious: Yes (Other)
  Sender: FDA-Public Use
  Company Number: US-BRISTOL-MYERS SQUIBB COMPANY-12571550

PATIENT
  Age: 59 Year
  Sex: Male

DRUGS (4)
  1. ERBITUX [Suspect]
     Indication: COLORECTAL CANCER
     Dosage: 5TH CYCLE. INITIAL DOSE 800 MG, SUBSEQUENT DOSES 500 MG.
     Route: 042
     Dates: start: 20040426, end: 20040426
  2. BENADRYL [Concomitant]
     Dosage: 50 MG IVP PRIOR TO TREATMENT
     Route: 040
     Dates: start: 20040426, end: 20040426
  3. LIPITOR [Concomitant]
  4. VICODIN [Concomitant]

REACTIONS (4)
  - BLOOD PRESSURE ABNORMAL [None]
  - CHILLS [None]
  - DYSPNOEA [None]
  - FLUSHING [None]
